FAERS Safety Report 12253283 (Version 1)
Quarter: 2016Q2

REPORT INFORMATION
  Report Type: Spontaneous
  Country: US (occurrence: None)
  Receive Date: 20160408
  Receipt Date: 20160408
  Transmission Date: 20160815
  Serious: No
  Sender: FDA-Public Use
  Company Number: None

PATIENT
  Age: 52 Year
  Sex: Male

DRUGS (2)
  1. ERTAPENEM NA 1000MG MERCK SHARP + DOHME [Suspect]
     Active Substance: ERTAPENEM SODIUM
     Indication: ABSCESS
     Route: 042
     Dates: start: 20160325, end: 20160328
  2. ERTAPENEM NA 1000MG MERCK SHARP + DOHME [Suspect]
     Active Substance: ERTAPENEM SODIUM
     Indication: CELLULITIS
     Route: 042
     Dates: start: 20160325, end: 20160328

REACTIONS (2)
  - Mental status changes [None]
  - Seizure [None]

NARRATIVE: CASE EVENT DATE: 20160328
